FAERS Safety Report 5092373-4 (Version None)
Quarter: 2006Q3

REPORT INFORMATION
  Report Type: 
  Country: None (occurrence: None)
  Receive Date: 20060825
  Receipt Date: 20060809
  Transmission Date: 20061208
  Serious: Yes (Hospitalization)
  Sender: FDA-Public Use
  Company Number: US200608002068

PATIENT
  Age: 77 Year
  Sex: Female

DRUGS (7)
  1. HUMULIN N [Suspect]
     Indication: DIABETES MELLITUS
     Dosage: 14 U, EACH MORNING,
     Dates: start: 19920701, end: 20030101
  2. HUMULIN N [Suspect]
     Indication: DIABETES MELLITUS
     Dosage: 14 U, EACH MORNING,
     Dates: start: 20030101
  3. HUMULIN N [Suspect]
     Indication: DIABETES MELLITUS
     Dosage: 14 U, EACH MORNING,
     Dates: start: 20030101
  4. HUMULIN N [Suspect]
  5. LISINOPRIL [Concomitant]
  6. ASPIRIN [Concomitant]
  7. TOPROL-XL [Concomitant]

REACTIONS (20)
  - ANOREXIA [None]
  - ANXIETY [None]
  - BLOOD GLUCOSE DECREASED [None]
  - BLOOD GLUCOSE INCREASED [None]
  - BLOOD PRESSURE INCREASED [None]
  - CATARACT [None]
  - CIRCUMSTANCE OR INFORMATION CAPABLE OF LEADING TO MEDICATION ERROR [None]
  - CONVULSION [None]
  - CYSTOCELE [None]
  - DISCOMFORT [None]
  - INSOMNIA [None]
  - MEDICAL DEVICE COMPLICATION [None]
  - MYOCARDIAL INFARCTION [None]
  - PAIN [None]
  - PAROSMIA [None]
  - PHARMACEUTICAL PRODUCT COMPLAINT [None]
  - POOR QUALITY DRUG ADMINISTERED [None]
  - TREMOR [None]
  - URINARY TRACT INFECTION [None]
  - WRONG TECHNIQUE IN DRUG USAGE PROCESS [None]
